FAERS Safety Report 24786223 (Version 1)
Quarter: 2024Q4

REPORT INFORMATION
  Report Type: Spontaneous
  Country: CZ (occurrence: CZ)
  Receive Date: 20241229
  Receipt Date: 20241229
  Transmission Date: 20250115
  Serious: Yes (Life-Threatening, Hospitalization, Other)
  Sender: BRISTOL-MYERS SQUIBB COMPANY
  Company Number: None

PATIENT
  Age: 59 Year
  Sex: Female
  Weight: 120 kg

DRUGS (4)
  1. YERVOY [Suspect]
     Active Substance: IPILIMUMAB
     Indication: Malignant melanoma
     Dosage: NIVOLUMAB 1MG/KG + IPILIMUMAB 3G/KG EVERY 21 DAYS, 3 CYCLES ADMINISTERED
     Route: 042
     Dates: start: 20240815, end: 20240925
  2. OPDIVO [Suspect]
     Active Substance: NIVOLUMAB
     Indication: Malignant melanoma
     Dosage: NIVOLUMAB 1MG/KG + IPILIMUMAB 3G/KG EVERY 21 DAYS, 3 CYCLES ADMINISTERED
     Route: 042
     Dates: start: 20240815, end: 20240925
  3. BETAXOLOL HYDROCHLORIDE [Concomitant]
     Active Substance: BETAXOLOL HYDROCHLORIDE
     Indication: Product used for unknown indication
     Dosage: 1-0-0
  4. METFORMIN HYDROCHLORIDE [Concomitant]
     Active Substance: METFORMIN HYDROCHLORIDE
     Indication: Product used for unknown indication
     Dosage: 0-0-1
     Route: 048

REACTIONS (9)
  - Renal failure [Recovering/Resolving]
  - Liver disorder [Recovering/Resolving]
  - Hypocalcaemia [Recovered/Resolved]
  - Anaemia [Recovered/Resolved]
  - Venous thrombosis limb [Unknown]
  - Off label use [Unknown]
  - Malignant neoplasm progression [Unknown]
  - Staphylococcus test positive [Unknown]
  - Escherichia test positive [Unknown]

NARRATIVE: CASE EVENT DATE: 20241016
